FAERS Safety Report 5766467-1 (Version None)
Quarter: 2008Q2

REPORT INFORMATION
  Report Type: 
  Country: None (occurrence: None)
  Receive Date: 20080606
  Receipt Date: 20080523
  Transmission Date: 20081010
  Serious: Yes (Hospitalization)
  Sender: FDA-Public Use
  Company Number: S08-ESP-01594-01

PATIENT
  Age: 50 Year
  Sex: Female

DRUGS (6)
  1. ESCITALOPRAM [Suspect]
     Indication: DEPRESSION
     Dosage: 3.3 MG QD PO
     Route: 048
     Dates: start: 20080311, end: 20080101
  2. ESCITALOPRAM [Suspect]
     Indication: DEPRESSION
     Dosage: 7 MG QD PO
     Route: 048
     Dates: start: 20080101, end: 20080101
  3. BISOPROLOL FUMARATE [Concomitant]
  4. ENALAPRIL MALEATE [Concomitant]
  5. SUTRIL (TORASEMIDE) [Concomitant]
  6. LORAZEPAM [Concomitant]

REACTIONS (2)
  - BRAIN NEOPLASM [None]
  - CEREBRAL HAEMORRHAGE [None]
